FAERS Safety Report 8953781 (Version 3)
Quarter: 2013Q1

REPORT INFORMATION
  Report Type: Report from Study
  Country: JP (occurrence: JP)
  Receive Date: 20121206
  Receipt Date: 20130116
  Transmission Date: 20140127
  Serious: Yes (Hospitalization)
  Sender: FDA-Public Use
  Company Number: JP-AMGEN-JPNCT2012078549

PATIENT
  Age: 58 Year
  Sex: Male

DRUGS (6)
  1. DENOSUMAB [Suspect]
     Indication: BONE GIANT CELL TUMOUR
     Dosage: 120 MG, Q4WK
     Route: 058
     Dates: start: 20120724
  2. JANUVIA [Concomitant]
     Indication: TYPE 2 DIABETES MELLITUS
     Dosage: 50 MG, QD
     Route: 048
     Dates: start: 2007
  3. GLIMEPIRIDE [Concomitant]
     Indication: TYPE 2 DIABETES MELLITUS
     Dosage: 1 MG, QD
     Route: 048
     Dates: start: 2007
  4. FEROTYM [Concomitant]
     Indication: ANAEMIA
     Dosage: 50 MG, BID
     Route: 048
     Dates: start: 2011
  5. URSO [Concomitant]
     Indication: JAUNDICE
     Dosage: 100 MG, TID
     Route: 048
     Dates: start: 201205
  6. CALCICHEW [Concomitant]
     Indication: PROPHYLAXIS
     Dosage: 2 DF, QD
     Route: 048
     Dates: start: 20120724

REACTIONS (1)
  - Pneumothorax [Recovered/Resolved]
